FAERS Safety Report 9413410 (Version 1)
Quarter: 2013Q3

REPORT INFORMATION
  Report Type: Spontaneous
  Country: CA (occurrence: CA)
  Receive Date: 20130722
  Receipt Date: 20130722
  Transmission Date: 20140515
  Serious: Yes (Other)
  Sender: FDA-Public Use
  Company Number: CA-GILEAD-2013-0079492

PATIENT
  Age: 73 Year
  Sex: Female

DRUGS (2)
  1. AMBRISENTAN [Suspect]
     Indication: PRODUCT USED FOR UNKNOWN INDICATION
     Dosage: 5MG UNKNOWN
     Route: 065
     Dates: start: 20130624, end: 20130627
  2. COUMADIN                           /00014802/ [Concomitant]

REACTIONS (2)
  - Dyspnoea at rest [Unknown]
  - Abdominal pain upper [Unknown]
